FAERS Safety Report 11296532 (Version 1)
Quarter: 2015Q3

REPORT INFORMATION
  Report Type: Spontaneous
  Country: US (occurrence: US)
  Receive Date: 20150722
  Receipt Date: 20150722
  Transmission Date: 20151125
  Serious: Yes (Other)
  Sender: FDA-Public Use
  Company Number: US-ELI_LILLY_AND_COMPANY-US201004002351

PATIENT
  Age: 65 Year
  Sex: Male

DRUGS (7)
  1. EFFIENT [Suspect]
     Active Substance: PRASUGREL HYDROCHLORIDE
     Dosage: 10 MG, UNK
     Dates: start: 20091120, end: 20100401
  2. ASPIRIN. [Concomitant]
     Active Substance: ASPIRIN
     Dosage: 81 MG, UNK
  3. MONOPRIL [Concomitant]
     Active Substance: FOSINOPRIL SODIUM
     Dosage: 5 MG, UNK
  4. NITRO                              /00003201/ [Concomitant]
     Dosage: UNK, AS NEEDED
     Route: 060
  5. COREG [Concomitant]
     Active Substance: CARVEDILOL
     Dosage: 6.25 MG, UNK
  6. PEPCID [Concomitant]
     Active Substance: FAMOTIDINE
     Dosage: 20 MG, UNK
  7. LIPITOR [Concomitant]
     Active Substance: ATORVASTATIN CALCIUM
     Dosage: 80 MG, UNK

REACTIONS (1)
  - Haemoglobin decreased [Unknown]

NARRATIVE: CASE EVENT DATE: 20100318
